FAERS Safety Report 20633201 (Version 1)
Quarter: 2022Q1

REPORT INFORMATION
  Report Type: Spontaneous
  Country: IT (occurrence: None)
  Receive Date: 20220324
  Receipt Date: 20220324
  Transmission Date: 20220423
  Serious: Yes (Hospitalization)
  Sender: FDA-Public Use
  Company Number: IT-ROCHE-3058996

PATIENT
  Age: 16 Year
  Sex: Male
  Weight: 69 kg

DRUGS (3)
  1. RIVOTRIL [Suspect]
     Active Substance: CLONAZEPAM
     Indication: Product used for unknown indication
     Dosage: 8 MG, EVERY 1 DAY
     Route: 048
     Dates: start: 20220302, end: 20220302
  2. XANAX [Suspect]
     Active Substance: ALPRAZOLAM
     Indication: Product used for unknown indication
     Dosage: 3 MG, EVERY 1 DAY
     Route: 048
     Dates: start: 20220302, end: 20220302
  3. CANNABIS SATIVA SUBSP. INDICA TOP [Suspect]
     Active Substance: CANNABIS SATIVA SUBSP. INDICA TOP
     Indication: Product used for unknown indication
     Dosage: UNK
     Route: 065

REACTIONS (5)
  - Sopor [Recovering/Resolving]
  - Confusional state [Recovering/Resolving]
  - Speech disorder [Recovering/Resolving]
  - Nystagmus [Recovering/Resolving]
  - Drug abuse [Unknown]

NARRATIVE: CASE EVENT DATE: 20220302
